FAERS Safety Report 25421309 (Version 2)
Quarter: 2025Q3

REPORT INFORMATION
  Report Type: Spontaneous
  Country: EU (occurrence: EU)
  Receive Date: 20250611
  Receipt Date: 20250803
  Transmission Date: 20251020
  Serious: Yes (Life-Threatening, Hospitalization)
  Sender: ALEXION PHARMACEUTICALS
  Company Number: None

PATIENT
  Age: 62 Year
  Sex: Male
  Weight: 70 kg

DRUGS (2)
  1. ROFLUMILAST [Suspect]
     Active Substance: ROFLUMILAST
     Indication: Psoriasis
     Dates: start: 20250515, end: 20250519
  2. CYCLOSPORINE [Concomitant]
     Active Substance: CYCLOSPORINE
     Indication: Psoriasis
     Route: 065

REACTIONS (1)
  - Coombs negative haemolytic anaemia [Recovered/Resolved]

NARRATIVE: CASE EVENT DATE: 20250515
